FAERS Safety Report 12405888 (Version 1)
Quarter: 2016Q2

REPORT INFORMATION
  Report Type: Report from Study
  Country: US (occurrence: US)
  Receive Date: 20160526
  Receipt Date: 20160526
  Transmission Date: 20160815
  Serious: No
  Sender: FDA-Public Use
  Company Number: US-AMGEN-USASL2016063735

PATIENT
  Age: 31 Year
  Sex: Female

DRUGS (1)
  1. ENBREL [Suspect]
     Active Substance: ETANERCEPT
     Indication: RHEUMATOID ARTHRITIS
     Dosage: UNK UNK, QWK
     Route: 065

REACTIONS (8)
  - Maternal exposure during pregnancy [Unknown]
  - Pruritus generalised [Recovered/Resolved]
  - Rash papular [Recovered/Resolved]
  - Injection site bruising [Recovered/Resolved]
  - Injection site reaction [Unknown]
  - Injection site pruritus [Recovered/Resolved]
  - Influenza [Unknown]
  - Injection site erythema [Recovered/Resolved]
